FAERS Safety Report 9928625 (Version 1)
Quarter: 2014Q1

REPORT INFORMATION
  Report Type: Spontaneous
  Country: CL (occurrence: None)
  Receive Date: 20140225
  Receipt Date: 20140225
  Transmission Date: 20141002
  Serious: Yes (Hospitalization)
  Sender: FDA-Public Use
  Company Number: IPC201402-000090

PATIENT
  Age: 72 Year
  Sex: Female

DRUGS (1)
  1. METFORMIN HYDROCHLORIDE (METFORMIN HYDROCHLORIDE) (METFORMIN HYDROCHLORIDE) [Suspect]

REACTIONS (11)
  - Fall [None]
  - Lactic acidosis [None]
  - Vomiting [None]
  - Hemiparesis [None]
  - Subdural haematoma [None]
  - Gastric haemorrhage [None]
  - Varices oesophageal [None]
  - Gastric ulcer [None]
  - Liver injury [None]
  - Portal hypertension [None]
  - Multi-organ failure [None]
